FAERS Safety Report 9982740 (Version 1)
Quarter: 2014Q1

REPORT INFORMATION
  Report Type: Spontaneous
  Country: US (occurrence: None)
  Receive Date: 20140128
  Receipt Date: 20140128
  Transmission Date: 20141002
  Serious: Yes (Hospitalization)
  Sender: FDA-Public Use
  Company Number: A-NJ2013-85360

PATIENT
  Age: 73 Year
  Sex: Female

DRUGS (5)
  1. TRACLEER [Suspect]
     Indication: PULMONARY ARTERIAL HYPERTENSION
     Route: 048
  2. ASA (ACETYLSALICYLIC ACID) [Concomitant]
  3. SILDENAFIL (SILDENAFIL) [Concomitant]
  4. LASIX (FUROSEMIDE) [Concomitant]
  5. COUMADIN (WARFARIN SODIUM) [Concomitant]

REACTIONS (4)
  - Dyspnoea [None]
  - Condition aggravated [None]
  - Pulmonary arterial pressure decreased [None]
  - Blood pressure decreased [None]
